FAERS Safety Report 6330348-5 (Version None)
Quarter: 2009Q3

REPORT INFORMATION
  Report Type: 
  Country: None (occurrence: None)
  Receive Date: 20090826
  Receipt Date: 20090826
  Transmission Date: 20100115
  Serious: Yes (Hospitalization)
  Sender: FDA-Public Use
  Company Number: None

PATIENT
  Age: 53 Year
  Sex: Male
  Weight: 111.1 kg

DRUGS (3)
  1. INDOMETHACIN [Suspect]
     Indication: PYREXIA
     Dosage: 75MG TWICE DAILY PO
     Route: 048
     Dates: start: 20080806, end: 20080817
  2. ATENOLOL [Concomitant]
  3. LISINOPRIL [Concomitant]

REACTIONS (3)
  - ANAEMIA [None]
  - CATHETER RELATED INFECTION [None]
  - PANCYTOPENIA [None]
